FAERS Safety Report 7223085-6 (Version None)
Quarter: 2011Q1

REPORT INFORMATION
  Report Type: 
  Country: None (occurrence: None)
  Receive Date: 20110112
  Receipt Date: 20100223
  Transmission Date: 20110831
  Serious: No
  Sender: FDA-Public Use
  Company Number: US-ALLERGAN-1000186US

PATIENT
  Age: 56 Year
  Sex: Female
  Weight: 125 kg

DRUGS (4)
  1. RESTASIS [Suspect]
     Indication: DRY EYE
     Dosage: 1 GTT, QD
     Route: 047
     Dates: start: 20091001
  2. PROPRANOLOL [Concomitant]
     Indication: MIGRAINE
     Dosage: 80 MG, QD
  3. DETROL [Concomitant]
     Indication: POLLAKIURIA
     Dosage: 4 MG, QD
  4. ALVESCO [Concomitant]
     Indication: ASTHMA
     Dosage: 160 A?G, BID

REACTIONS (3)
  - INCORRECT DOSE ADMINISTERED [None]
  - MIGRAINE [None]
  - EYE IRRITATION [None]
